FAERS Safety Report 9443089 (Version 1)
Quarter: 2013Q3

REPORT INFORMATION
  Report Type: Spontaneous
  Country: FR (occurrence: FR)
  Receive Date: 20130806
  Receipt Date: 20130806
  Transmission Date: 20140515
  Serious: Yes (Disabling)
  Sender: FDA-Public Use
  Company Number: FR-GILEAD-2013-0080524

PATIENT
  Age: 44 Year
  Sex: Female

DRUGS (5)
  1. TRUVADA [Suspect]
     Dosage: UNK
     Dates: start: 2004, end: 20121130
  2. CERAZETTE /00011001/ [Suspect]
     Dosage: UNK
     Dates: start: 201207, end: 20121112
  3. NORVIR [Suspect]
     Dosage: UNK
     Dates: start: 2004, end: 20121130
  4. REYATAZ [Suspect]
     Dosage: UNK
     Dates: start: 2004, end: 20121130
  5. OLMETEC [Concomitant]
     Dosage: UNK

REACTIONS (1)
  - Acute myocardial infarction [Recovered/Resolved with Sequelae]
